FAERS Safety Report 23858854 (Version 2)
Quarter: 2024Q4

REPORT INFORMATION
  Report Type: Report from Study
  Country: PR (occurrence: PR)
  Receive Date: 20240515
  Receipt Date: 20241023
  Transmission Date: 20250115
  Serious: Yes (Other)
  Sender: ASTELLAS
  Company Number: PR-ASTELLAS-2024EU004603

PATIENT
  Age: 81 Year
  Sex: Male
  Weight: 63.5 kg

DRUGS (3)
  1. XTANDI [Suspect]
     Active Substance: ENZALUTAMIDE
     Indication: Prostate cancer
     Route: 048
     Dates: start: 20220901
  2. TRELSTAR [Concomitant]
     Active Substance: TRIPTORELIN PAMOATE
     Indication: Product used for unknown indication
     Route: 065
     Dates: start: 20220823
  3. XGEVA [Concomitant]
     Active Substance: DENOSUMAB
     Indication: Product used for unknown indication
     Route: 065
     Dates: start: 20231129

REACTIONS (2)
  - Choking [Recovered/Resolved]
  - Epigastric discomfort [Unknown]

NARRATIVE: CASE EVENT DATE: 20240101
